FAERS Safety Report 9745923 (Version 1)
Quarter: 2013Q4

REPORT INFORMATION
  Report Type: Spontaneous
  Country: US (occurrence: None)
  Receive Date: 20131206
  Receipt Date: 20131206
  Transmission Date: 20140711
  Serious: Yes (Hospitalization)
  Sender: FDA-Public Use
  Company Number: None

PATIENT
  Age: 62 Year
  Sex: Male
  Weight: 101 kg

DRUGS (5)
  1. ZOSYN [Suspect]
     Indication: PNEUMONIA
     Route: 042
     Dates: start: 20131123, end: 20131126
  2. HEPARIN [Concomitant]
  3. LOVENOX [Concomitant]
  4. VANCOMYCIN [Concomitant]
  5. LEVAQUIN [Concomitant]

REACTIONS (1)
  - Thrombocytopenia [None]
